FAERS Safety Report 8887534 (Version 1)
Quarter: 2012Q4

REPORT INFORMATION
  Report Type: Spontaneous
  Country: PT (occurrence: None)
  Receive Date: 20121031
  Receipt Date: 20121031
  Transmission Date: 20130627
  Serious: Yes (Other)
  Sender: FDA-Public Use
  Company Number: FK201203188

PATIENT
  Age: 3 Year

DRUGS (2)
  1. CARBOPLATIN [Suspect]
     Indication: BRAIN NEOPLASM
  2. VINCRESTINE [Concomitant]

REACTIONS (1)
  - Anaphylactic reaction [None]
